FAERS Safety Report 9072236 (Version 1)
Quarter: 2013Q1

REPORT INFORMATION
  Report Type: Spontaneous
  Country: US (occurrence: US)
  Receive Date: 20130206
  Receipt Date: 20130206
  Transmission Date: 20140127
  Serious: No
  Sender: FDA-Public Use
  Company Number: US-ALLERGAN-1216926US

PATIENT
  Age: 72 Year
  Sex: Female

DRUGS (4)
  1. RESTASIS? [Suspect]
     Indication: DRY EYE
     Dosage: 2 GTT, BID
     Route: 047
     Dates: start: 201209
  2. THREE UNSPECIFIED LUBRICATING EYE DROPS [Concomitant]
     Indication: DRY EYE
     Dosage: UNK, PRN
     Route: 047
  3. GABAPENTIN [Concomitant]
     Indication: NEURALGIA
     Dosage: 300 MG, TID
     Route: 048
     Dates: start: 2010
  4. ASA [Concomitant]
     Indication: NEURALGIA
     Dosage: UNK UNK, QD
     Route: 048
     Dates: start: 2010

REACTIONS (3)
  - Therapeutic response decreased [Unknown]
  - Superficial injury of eye [Unknown]
  - Eye pain [Unknown]
